FAERS Safety Report 10760810 (Version 1)
Quarter: 2015Q1

REPORT INFORMATION
  Report Type: Spontaneous
  Country: US (occurrence: None)
  Receive Date: 20150202
  Receipt Date: 20150202
  Transmission Date: 20150721
  Serious: Yes (Hospitalization, Other)
  Sender: FDA-Public Use
  Company Number: LH201500072

PATIENT
  Age: 25 Year
  Sex: Female

DRUGS (2)
  1. PRENATAL VITAMINS /02014401/ (ASCORBIC ACID, CALCIUM PANTOTHENATE, CYANOCOBALAMIN, ERGOCLACIFEROL, NICOTINAMIDE, PYRIDOXINE HYDROCHLORIDE, RETINOL PALMITATE, RIBOFLAVIN, THIAMINE MONONITRATE) [Concomitant]
  2. MAKENA [Suspect]
     Active Substance: HYDROXYPROGESTERONE CAPROATE
     Indication: PREMATURE DELIVERY
     Route: 030
     Dates: start: 20141201, end: 20150112

REACTIONS (4)
  - Back pain [None]
  - Premature labour [None]
  - Exposure during pregnancy [None]
  - Bacterial infection [None]

NARRATIVE: CASE EVENT DATE: 20150114
